FAERS Safety Report 7151891-5 (Version None)
Quarter: 2010Q4

REPORT INFORMATION
  Report Type: 
  Country: None (occurrence: None)
  Receive Date: 20101210
  Receipt Date: 20101201
  Transmission Date: 20110411
  Serious: Yes (Other)
  Sender: FDA-Public Use
  Company Number: US-ABBOTT-10P-163-0689279-00

PATIENT
  Sex: Male

DRUGS (4)
  1. SIMCOR [Suspect]
     Indication: HYPERTRIGLYCERIDAEMIA
     Dosage: 2 TABS A DAY, 1000MG/20MG
     Dates: start: 20100601, end: 20101121
  2. SIMCOR [Suspect]
     Indication: HYPERCHOLESTEROLAEMIA
  3. ZOCOR [Concomitant]
     Indication: HYPERTRIGLYCERIDAEMIA
     Dates: start: 20101121
  4. ZOCOR [Concomitant]
     Indication: HYPERCHOLESTEROLAEMIA

REACTIONS (4)
  - BLOOD PRESSURE INCREASED [None]
  - FLUSHING [None]
  - GENERALISED ERYTHEMA [None]
  - PALPITATIONS [None]
